FAERS Safety Report 17293084 (Version 1)
Quarter: 2020Q1

REPORT INFORMATION
  Report Type: Spontaneous
  Country: US (occurrence: US)
  Receive Date: 20200121
  Receipt Date: 20200121
  Transmission Date: 20200409
  Serious: Yes (Hospitalization, Other)
  Sender: FDA-Public Use
  Company Number: US-ACCORD-170348

PATIENT
  Age: 43 Year
  Sex: Female

DRUGS (2)
  1. FLUOROURACIL. [Suspect]
     Active Substance: FLUOROURACIL
     Indication: RECTAL ADENOCARCINOMA
     Dosage: SECOND LINE TREATMENT WITH 5-FU CONTINUOUS INFUSION DAY NUMBER 7 OF 7 OF THE 5TH CYCLE
  2. FLUOROURACIL. [Suspect]
     Active Substance: FLUOROURACIL
     Indication: RECTAL ADENOCARCINOMA
     Dosage: SECOND LINE TREATMENT WITH 5-FU CONTINUOUS INFUSION DAY NUMBER 7 OF 7 OF THE 5TH CYCLE

REACTIONS (4)
  - Hypomagnesaemia [Unknown]
  - Blood creatinine increased [Unknown]
  - Posterior reversible encephalopathy syndrome [Recovered/Resolved]
  - Hypercalcaemia [Unknown]
